FAERS Safety Report 5270658-6 (Version None)
Quarter: 2007Q1

REPORT INFORMATION
  Report Type: 
  Country: None (occurrence: None)
  Receive Date: 20070321
  Receipt Date: 20070316
  Transmission Date: 20070707
  Serious: Yes (Hospitalization, Other)
  Sender: FDA-Public Use
  Company Number: CH-ELI_LILLY_AND_COMPANY-CH200703003568

PATIENT
  Age: 38 Year
  Sex: Female

DRUGS (8)
  1. ZYPREXA [Suspect]
     Dosage: UNK, UNKNOWN
     Route: 065
     Dates: start: 20041123, end: 20050617
  2. ZYPREXA [Suspect]
     Dosage: UNK, UNKNOWN
     Route: 065
     Dates: start: 20041110
  3. SERPRAM [Concomitant]
  4. NOZINAN [Concomitant]
  5. ACETAMINOPHEN [Concomitant]
  6. IRFEN [Concomitant]
  7. EFEXOR /01233801/ [Concomitant]
     Dosage: UNK, UNK
     Dates: start: 20041123, end: 20050617
  8. TRANXILIUM [Concomitant]
     Dosage: UNK, UNK
     Dates: start: 20041123, end: 20050617

REACTIONS (2)
  - DRUG EXPOSURE DURING PREGNANCY [None]
  - SUICIDE ATTEMPT [None]
